FAERS Safety Report 25946995 (Version 1)
Quarter: 2025Q4

REPORT INFORMATION
  Report Type: Spontaneous
  Country: US (occurrence: US)
  Receive Date: 20251022
  Receipt Date: 20251022
  Transmission Date: 20260118
  Serious: No
  Sender: CURIUM PHARMACEUTICALS
  Company Number: US-CURIUM-2025000657

PATIENT
  Age: 54 Year

DRUGS (4)
  1. TECHNETIUM TC-99M SESTAMIBI [Suspect]
     Active Substance: TECHNETIUM TC-99M SESTAMIBI
     Indication: Scan myocardial perfusion
     Route: 042
     Dates: start: 20250821, end: 20250821
  2. TECHNETIUM TC-99M SESTAMIBI [Suspect]
     Active Substance: TECHNETIUM TC-99M SESTAMIBI
     Indication: Scan myocardial perfusion
     Route: 042
     Dates: start: 20250821, end: 20250821
  3. Lantheus generator [Concomitant]
     Indication: Scan myocardial perfusion
     Route: 042
     Dates: start: 20250821, end: 20250821
  4. Lantheus generator [Concomitant]
     Indication: Scan myocardial perfusion
     Route: 042
     Dates: start: 20250821, end: 20250821

REACTIONS (4)
  - Scan myocardial perfusion abnormal [Not Recovered/Not Resolved]
  - Drug ineffective [Not Recovered/Not Resolved]
  - Product preparation error [Recovered/Resolved]
  - Inappropriate schedule of product administration [Recovered/Resolved]

NARRATIVE: CASE EVENT DATE: 20250821
